FAERS Safety Report 20814695 (Version 1)
Quarter: 2022Q2

REPORT INFORMATION
  Report Type: Spontaneous
  Country: US (occurrence: US)
  Receive Date: 20220511
  Receipt Date: 20220511
  Transmission Date: 20220721
  Serious: No
  Sender: FDA-Public Use
  Company Number: US-ELI_LILLY_AND_COMPANY-US202204006040

PATIENT
  Age: 75 Year
  Sex: Female

DRUGS (6)
  1. TRULICITY [Suspect]
     Active Substance: DULAGLUTIDE
     Indication: Type 2 diabetes mellitus
     Dosage: 0.75 MG, UNKNOWN
     Route: 065
  2. INSULIN LISPRO [Suspect]
     Active Substance: INSULIN LISPRO
     Indication: Type 2 diabetes mellitus
     Dosage: 4 U, DAILY (BREAKFAST)
     Route: 065
  3. INSULIN LISPRO [Suspect]
     Active Substance: INSULIN LISPRO
     Dosage: 10 U, DAILY
     Route: 065
  4. INSULIN LISPRO [Suspect]
     Active Substance: INSULIN LISPRO
     Dosage: 4 U, DAILY (BREAKFAST)
     Route: 065
  5. INSULIN LISPRO [Suspect]
     Active Substance: INSULIN LISPRO
     Dosage: 10 U, DAILY
     Route: 065
  6. TOUJEO [Concomitant]
     Active Substance: INSULIN GLARGINE
     Indication: Type 2 diabetes mellitus
     Dosage: 100 U, DAILY
     Route: 065

REACTIONS (3)
  - Glycosylated haemoglobin increased [Unknown]
  - Arthropathy [Unknown]
  - Mobility decreased [Unknown]
